FAERS Safety Report 5445178-6 (Version None)
Quarter: 2007Q3

REPORT INFORMATION
  Report Type: 
  Country: None (occurrence: None)
  Receive Date: 20070730
  Receipt Date: 20070417
  Transmission Date: 20080115
  Serious: Yes (Disabling)
  Sender: FDA-Public Use
  Company Number: 240190

PATIENT
  Age: 69 Year
  Sex: Female
  Weight: 98.8 kg

DRUGS (2)
  1. RITUXAN [Suspect]
     Indication: LYMPHOPROLIFERATIVE DISORDER
     Dosage: 495 MG, X4, INTRAVENOUS
     Route: 042
     Dates: start: 20050707
  2. PREDNISONE TAB [Concomitant]

REACTIONS (1)
  - PROGRESSIVE MULTIFOCAL LEUKOENCEPHALOPATHY [None]
